FAERS Safety Report 20641750 (Version 2)
Quarter: 2022Q1

REPORT INFORMATION
  Report Type: Other
  Country: JP (occurrence: JP)
  Receive Date: 20220328
  Receipt Date: 20220331
  Transmission Date: 20220423
  Serious: Yes (Death, Other)
  Sender: FDA-Public Use
  Company Number: JP-CHUGAI-2022010165

PATIENT
  Age: 42 Year
  Sex: Female

DRUGS (1)
  1. XELODA [Suspect]
     Active Substance: CAPECITABINE
     Indication: Invasive ductal breast carcinoma
     Dosage: UNK
     Route: 048

REACTIONS (4)
  - Disease progression [Fatal]
  - Malignant pleural effusion [Unknown]
  - Lymphangiosis carcinomatosa [Unknown]
  - Drug ineffective [Unknown]
